FAERS Safety Report 11141051 (Version 1)
Quarter: 2015Q2

REPORT INFORMATION
  Report Type: Spontaneous
  Country: US (occurrence: US)
  Receive Date: 20150525
  Receipt Date: 20150525
  Transmission Date: 20150821
  Serious: Yes (Other)
  Sender: FDA-Public Use
  Company Number: US-JNJFOC-20140802173

PATIENT
  Age: 11 Year
  Sex: Male

DRUGS (1)
  1. RISPERDAL [Suspect]
     Active Substance: RISPERIDONE
     Indication: AUTISM
     Route: 048

REACTIONS (5)
  - Gynaecomastia [Not Recovered/Not Resolved]
  - Weight increased [Recovering/Resolving]
  - Hypophagia [Unknown]
  - Type 2 diabetes mellitus [Unknown]
  - Seizure [Unknown]
